FAERS Safety Report 8512413 (Version 4)
Quarter: 2014Q2

REPORT INFORMATION
  Report Type: Spontaneous
  Country: US (occurrence: US)
  Receive Date: 20120413
  Receipt Date: 20140515
  Transmission Date: 20141212
  Serious: Yes (Hospitalization, Other)
  Sender: FDA-Public Use
  Company Number: US-ASTRAZENECA-2011SE34592

PATIENT
  Age: 51 Year
  Sex: Female
  Weight: 145.2 kg

DRUGS (33)
  1. NEXIUM [Suspect]
     Indication: GASTROOESOPHAGEAL REFLUX DISEASE
     Route: 048
     Dates: start: 2001, end: 20140418
  2. NEXIUM [Suspect]
     Indication: ULCER
     Route: 048
     Dates: start: 2001, end: 20140418
  3. NEXIUM [Suspect]
     Indication: HIATUS HERNIA
     Route: 048
     Dates: start: 2001, end: 20140418
  4. NEXIUM [Suspect]
     Indication: GASTROOESOPHAGEAL REFLUX DISEASE
     Route: 048
  5. NEXIUM [Suspect]
     Indication: ULCER
     Route: 048
  6. NEXIUM [Suspect]
     Indication: HIATUS HERNIA
     Route: 048
  7. NEXIUM [Suspect]
     Indication: GASTROOESOPHAGEAL REFLUX DISEASE
     Route: 048
  8. NEXIUM [Suspect]
     Indication: ULCER
     Route: 048
  9. NEXIUM [Suspect]
     Indication: HIATUS HERNIA
     Route: 048
  10. PRILOSEC OTC [Suspect]
     Route: 048
  11. SYMBICORT [Suspect]
     Indication: CHRONIC OBSTRUCTIVE PULMONARY DISEASE
     Dosage: 80  MCG, 2 PUFFS, TWO TIMES A DAY
     Route: 055
     Dates: start: 2010
  12. LISINOPRIL [Suspect]
     Indication: HEART RATE INCREASED
     Route: 048
     Dates: start: 2011
  13. ZANTAC [Concomitant]
  14. FLUEXETINE [Concomitant]
     Indication: STRESS
     Route: 048
     Dates: start: 2013
  15. FLUEXETINE [Concomitant]
     Indication: NERVOUS SYSTEM DISORDER
     Route: 048
     Dates: start: 2013
  16. FUROSEMIDE [Concomitant]
     Indication: LYMPHOEDEMA
     Route: 048
     Dates: start: 2000
  17. ERYTHROMYCIN [Concomitant]
     Indication: GASTRIC INFECTION
     Route: 048
     Dates: start: 2010
  18. CHOLYSTERINE POWDER [Concomitant]
     Indication: PROPHYLAXIS AGAINST DIARRHOEA
     Route: 048
     Dates: start: 2009
  19. LEVOTHYROXINE [Concomitant]
     Indication: THYROID DISORDER
     Route: 048
     Dates: start: 2000
  20. PREDNISONE [Concomitant]
     Indication: INFLUENZA
     Route: 048
     Dates: start: 20140417
  21. PREDNISONE [Concomitant]
     Indication: MALAISE
     Route: 048
     Dates: start: 20140417
  22. RANITIDINE [Concomitant]
     Indication: GASTROOESOPHAGEAL REFLUX DISEASE
     Route: 048
     Dates: start: 2009
  23. TYLENOL [Concomitant]
     Indication: PAIN
     Dosage: UPTO 4 PRN
     Route: 048
  24. HYDROCODONE ACT [Concomitant]
     Indication: PAIN
     Dosage: 10 MG+325 MG, THREE TIMES A DAY, PRN
     Route: 048
     Dates: start: 2013
  25. MORPHINE SUL [Concomitant]
     Indication: PAIN
     Route: 048
     Dates: start: 2013
  26. NEURONTIN [Concomitant]
     Indication: PAIN
     Route: 048
     Dates: start: 2000
  27. SPIRIVA [Concomitant]
     Indication: CHRONIC OBSTRUCTIVE PULMONARY DISEASE
     Route: 055
     Dates: start: 2010
  28. ALBUTEROL INHALER [Concomitant]
     Indication: CHRONIC OBSTRUCTIVE PULMONARY DISEASE
     Dosage: BID
     Route: 055
     Dates: start: 2010
  29. BENADRYL [Concomitant]
     Indication: SLEEP DISORDER
     Route: 048
  30. LORATIDINE [Concomitant]
     Indication: INCREASED UPPER AIRWAY SECRETION
     Route: 048
     Dates: start: 201404
  31. ALKA SELTZER [Concomitant]
     Indication: CHOKING
     Dosage: AT NIGHT
     Route: 048
     Dates: start: 201404
  32. ASPIRIN [Concomitant]
     Indication: HEART RATE INCREASED
     Route: 048
  33. FAMOTIDINE [Concomitant]
     Indication: GASTROOESOPHAGEAL REFLUX DISEASE
     Route: 048
     Dates: start: 201404

REACTIONS (35)
  - Pneumonia [Unknown]
  - Sleep apnoea syndrome [Unknown]
  - Chronic obstructive pulmonary disease [Unknown]
  - Foot fracture [Unknown]
  - Foot fracture [Unknown]
  - Skin cancer [Unknown]
  - Carpal tunnel syndrome [Unknown]
  - Fracture [Unknown]
  - Aspiration [Unknown]
  - Heart rate increased [Unknown]
  - Weight increased [Unknown]
  - Weight decreased [Unknown]
  - Ulcer [Unknown]
  - Choking [Unknown]
  - Disease recurrence [Unknown]
  - Gastrooesophageal reflux disease [Unknown]
  - Acrochordon [Unknown]
  - Nerve compression [Unknown]
  - Breast pain [Unknown]
  - Pain in extremity [Unknown]
  - Oxygen saturation decreased [Unknown]
  - Dyspepsia [Unknown]
  - Sleep disorder due to a general medical condition [Unknown]
  - Lower respiratory tract infection [Unknown]
  - Cough [Unknown]
  - Throat irritation [Unknown]
  - Aphagia [Unknown]
  - Productive cough [Unknown]
  - Throat irritation [Unknown]
  - Oral candidiasis [Unknown]
  - Malaise [Unknown]
  - Drug dose omission [Unknown]
  - Diarrhoea [Unknown]
  - Off label use [Unknown]
  - Drug ineffective [Unknown]
